FAERS Safety Report 4954712-1 (Version None)
Quarter: 2006Q1

REPORT INFORMATION
  Report Type: 
  Country: None (occurrence: None)
  Receive Date: 20060131
  Receipt Date: 20050201
  Transmission Date: 20060701
  Serious: No
  Sender: FDA-Public Use
  Company Number: 05P-163-0289049-00

PATIENT
  Sex: Female

DRUGS (1)
  1. OMNICEF [Suspect]
     Indication: SINUSITIS
     Dosage: PER ORAL
     Route: 048
     Dates: start: 20050101, end: 20050101

REACTIONS (4)
  - ANAPHYLACTIC REACTION [None]
  - GENERALISED OEDEMA [None]
  - NAUSEA [None]
  - PYREXIA [None]
